FAERS Safety Report 21026090 (Version 1)
Quarter: 2022Q2

REPORT INFORMATION
  Report Type: Spontaneous
  Country: IN (occurrence: IN)
  Receive Date: 20220630
  Receipt Date: 20220630
  Transmission Date: 20220721
  Serious: Yes (Hospitalization)
  Sender: FDA-Public Use
  Company Number: IN-ENDO PHARMACEUTICALS INC-2022-003799

PATIENT
  Age: 36 Year
  Sex: Male

DRUGS (3)
  1. BACLOFEN [Suspect]
     Active Substance: BACLOFEN
     Indication: Alcoholism
     Dosage: 20 MG, DAILY
     Route: 065
  2. CHLORDIAZEPOXIDE                   /00011502/ [Concomitant]
     Indication: Alcohol withdrawal syndrome
     Dosage: UNK UNKNOWN, UNKNOWN
     Route: 048
  3. THIAMINE [Concomitant]
     Active Substance: THIAMINE
     Indication: Alcohol withdrawal syndrome
     Dosage: UNK UNKNOWN, UNKNOWN
     Route: 051

REACTIONS (2)
  - Suicidal ideation [Recovered/Resolved]
  - Off label use [Recovered/Resolved]
